FAERS Safety Report 11235839 (Version 1)
Quarter: 2015Q3

REPORT INFORMATION
  Report Type: Report from Study
  Country: FR (occurrence: FR)
  Receive Date: 20150702
  Receipt Date: 20150702
  Transmission Date: 20151125
  Serious: Yes (Hospitalization, Other)
  Sender: FDA-Public Use
  Company Number: FR-GLAXOSMITHKLINE-FR2015GSK094801

PATIENT
  Age: 54 Year
  Sex: Female

DRUGS (7)
  1. OMEGA-3-ACID ETHYL ESTERS. [Suspect]
     Active Substance: OMEGA-3-ACID ETHYL ESTERS
     Indication: ISCHAEMIC HEART DISEASE PROPHYLAXIS
     Dosage: UNK
     Dates: start: 20060717
  2. KARDEGIC [Concomitant]
     Active Substance: ASPIRIN LYSINE
  3. TENORMIN [Concomitant]
     Active Substance: ATENOLOL
  4. PLAVIX [Concomitant]
     Active Substance: CLOPIDOGREL BISULFATE
  5. TAHOR [Concomitant]
     Active Substance: ATORVASTATIN CALCIUM
  6. NOVONORM [Concomitant]
     Active Substance: REPAGLINIDE
  7. TAREG [Concomitant]
     Active Substance: VALSARTAN

REACTIONS (2)
  - Myocardial infarction [Unknown]
  - Vascular graft [Unknown]

NARRATIVE: CASE EVENT DATE: 20101127
